FAERS Safety Report 23032684 (Version 2)
Quarter: 2024Q2

REPORT INFORMATION
  Report Type: Report from Study
  Country: TH (occurrence: TH)
  Receive Date: 20231005
  Receipt Date: 20240403
  Transmission Date: 20240715
  Serious: Yes (Other)
  Sender: FDA-Public Use
  Company Number: TH-002147023-NVSC2023TH213404

PATIENT
  Age: 43 Year
  Sex: Female
  Weight: 99 kg

DRUGS (6)
  1. KISQALI [Suspect]
     Active Substance: RIBOCICLIB
     Indication: Breast cancer metastatic
     Dosage: 3 TABLETS, 1 TIME AFTER BREAKFAST, 3 WEEKS
     Route: 048
  2. LETROZOLE [Suspect]
     Active Substance: LETROZOLE
     Indication: Product used for unknown indication
     Dosage: 2.5 MG, 1 TABLET AFTER BREAKFAST
     Route: 048
  3. LACTULOSE [Concomitant]
     Active Substance: LACTULOSE
     Indication: Product used for unknown indication
     Dosage: 66.7 PERCENT,1 LIT SYR 2 TBS X TO BE TAKEN 1 UME, BEDTIME
     Route: 065
     Dates: start: 20221206
  4. MORPHINE SULFATE [Concomitant]
     Active Substance: MORPHINE SULFATE
     Indication: Product used for unknown indication
     Dosage: 10 MG TAB(C)(PL) 1 X EVERY 12 HR, DO NOT BREAK OR GRIND THE PILLL
     Route: 065
  5. SENOKOT [Concomitant]
     Active Substance: SENNOSIDES
     Indication: Product used for unknown indication
     Dosage: 7.5 MG TAB 2 X TO BE TAKEN 1 UME, BEDTIME
     Route: 065
  6. MORPHINE SULFATE [Concomitant]
     Active Substance: MORPHINE SULFATE
     Indication: Product used for unknown indication
     Dosage: 60ML SYR(C) 3 ML X TO BE TAKEN EVERY 2 HRSWHEN IN PAIN OR DIFFICULTY IN BREATHING
     Route: 065

REACTIONS (5)
  - Chronic kidney disease [Unknown]
  - Respiratory rate increased [Unknown]
  - Glomerular filtration rate decreased [Unknown]
  - Breast cancer metastatic [Unknown]
  - Malignant neoplasm progression [Unknown]

NARRATIVE: CASE EVENT DATE: 20221206
